FAERS Safety Report 24404317 (Version 1)
Quarter: 2024Q4

REPORT INFORMATION
  Report Type: Spontaneous
  Country: US (occurrence: None)
  Receive Date: 20241004
  Receipt Date: 20241004
  Transmission Date: 20250115
  Serious: Yes (Life-Threatening, Hospitalization, Disabling, Other)
  Sender: Public
  Company Number: None

PATIENT
  Sex: Female

DRUGS (2)
  1. AJOVY [Suspect]
     Active Substance: FREMANEZUMAB-VFRM
     Indication: Migraine
  2. VYEPTI [Suspect]
     Active Substance: EPTINEZUMAB-JJMR

REACTIONS (6)
  - Constipation [None]
  - Anxiety [None]
  - Insomnia [None]
  - Mental disorder [None]
  - Nonspecific reaction [None]
  - Fear [None]
